FAERS Safety Report 17290264 (Version 2)
Quarter: 2020Q1

REPORT INFORMATION
  Report Type: Report from Study
  Country: DE (occurrence: DE)
  Receive Date: 20200120
  Receipt Date: 20200203
  Transmission Date: 20200409
  Serious: Yes (Hospitalization)
  Sender: FDA-Public Use
  Company Number: DE-ROCHE-2521965

PATIENT
  Age: 53 Year
  Sex: Male
  Weight: 92 kg

DRUGS (12)
  1. PREDNISOLON [PREDNISOLONE] [Concomitant]
     Active Substance: PREDNISOLONE
     Route: 042
  2. CLEXANE [Concomitant]
     Active Substance: ENOXAPARIN SODIUM
     Route: 058
     Dates: start: 20200106, end: 20200109
  3. AMPHO-MORONAL [Concomitant]
     Active Substance: AMPHOTERICIN B
     Route: 048
     Dates: start: 20191214
  4. PANTOPRAZOLE [Concomitant]
     Active Substance: PANTOPRAZOLE
     Route: 048
     Dates: start: 20191113
  5. JONOSTERIL [CALCIUM ACETATE;MAGNESIUM ACETATE;POTASSIUM ACETATE;SODIUM [Concomitant]
     Route: 042
     Dates: start: 20191203
  6. PENTAMIDINE [Concomitant]
     Active Substance: PENTAMIDINE
     Route: 065
     Dates: start: 20191029
  7. OBINUTUZUMAB. [Suspect]
     Active Substance: OBINUTUZUMAB
     Indication: CHRONIC LYMPHOCYTIC LEUKAEMIA
     Dosage: ON 08/JAN/2020, HE RECEIVED LAST OBINUTUZUMAB (1000 MG) DOSE
     Route: 042
     Dates: start: 20200107
  8. BENDAMUSTINE [Suspect]
     Active Substance: BENDAMUSTINE
     Indication: CHRONIC LYMPHOCYTIC LEUKAEMIA
     Dosage: ON 04/DEC/2019, HE RECEIVED RECENT DOSE OF BENDAMUSTINE.
     Route: 042
     Dates: start: 20191203, end: 20191218
  9. DEKRISTOL [Concomitant]
     Active Substance: CHOLECALCIFEROL
     Dosage: 20
     Route: 048
     Dates: start: 20191113
  10. PARACETAMOL [Concomitant]
     Active Substance: ACETAMINOPHEN
     Route: 048
     Dates: start: 20200107, end: 20200108
  11. NACL [Concomitant]
     Active Substance: SODIUM CHLORIDE
     Route: 065
  12. ALLOPURINOL. [Concomitant]
     Active Substance: ALLOPURINOL
     Route: 048
     Dates: start: 20200108

REACTIONS (2)
  - Blood disorder [Recovered/Resolved]
  - Lymphatic disorder [Recovered/Resolved]

NARRATIVE: CASE EVENT DATE: 20200110
